FAERS Safety Report 9693063 (Version 1)
Quarter: 2013Q4

REPORT INFORMATION
  Report Type: Spontaneous
  Country: US (occurrence: US)
  Receive Date: 20131118
  Receipt Date: 20131118
  Transmission Date: 20140711
  Serious: Yes (Hospitalization)
  Sender: FDA-Public Use
  Company Number: US-ROXANE LABORATORIES, INC.-2013-RO-01822RO

PATIENT
  Age: 3 Year
  Sex: Male

DRUGS (1)
  1. FLECAINIDE [Suspect]
     Indication: SUPRAVENTRICULAR TACHYCARDIA

REACTIONS (1)
  - Toxicity to various agents [Recovered/Resolved]
